FAERS Safety Report 7215776-8 (Version None)
Quarter: 2011Q1

REPORT INFORMATION
  Report Type: 
  Country: None (occurrence: None)
  Receive Date: 20110107
  Receipt Date: 20110105
  Transmission Date: 20110831
  Serious: Yes (Hospitalization)
  Sender: FDA-Public Use
  Company Number: KR-PFIZER INC-2010147622

PATIENT
  Age: 65 Year
  Sex: Male
  Weight: 58.1 kg

DRUGS (3)
  1. CODEINE [Concomitant]
     Indication: COUGH
     Dosage: UNK
     Route: 048
     Dates: end: 20101213
  2. SUTENE [Suspect]
     Indication: SMALL CELL LUNG CANCER STAGE UNSPECIFIED
     Dosage: 50 MG, 1X/DAY
     Route: 048
     Dates: start: 20100910, end: 20101114
  3. AMODIPIN TAB [Concomitant]
     Indication: HYPERTENSION
     Dosage: UNK
     Route: 048
     Dates: start: 20101001, end: 20101116

REACTIONS (1)
  - PERFORMANCE STATUS DECREASED [None]
